FAERS Safety Report 10060075 (Version 1)
Quarter: 2014Q2

REPORT INFORMATION
  Report Type: Other
  Country: BR (occurrence: BR)
  Receive Date: 20140404
  Receipt Date: 20140404
  Transmission Date: 20141212
  Serious: Yes (Death)
  Sender: FDA-Public Use
  Company Number: BR-ACTELION-A-CH2014-96996

PATIENT
  Age: 16 Year
  Sex: Female

DRUGS (1)
  1. ZAVESCA [Suspect]
     Indication: NIEMANN-PICK DISEASE
     Dosage: 600 MG, QD
     Route: 048

REACTIONS (16)
  - Pneumonia [Fatal]
  - Niemann-Pick disease [Unknown]
  - Disease progression [Unknown]
  - No therapeutic response [Unknown]
  - Dementia [Unknown]
  - Dystonia [Unknown]
  - Cerebellar ataxia [Unknown]
  - Mental disorder [Unknown]
  - Dysarthria [Unknown]
  - Dysphagia [Unknown]
  - Dysphonia [Unknown]
  - Asthenia [Unknown]
  - Gaze palsy [Unknown]
  - Cataplexy [Unknown]
  - Hepatosplenomegaly [Unknown]
  - Cholestasis [Unknown]
